FAERS Safety Report 18247767 (Version 1)
Quarter: 2020Q3

REPORT INFORMATION
  Report Type: Spontaneous
  Country: US (occurrence: US)
  Receive Date: 20200909
  Receipt Date: 20200909
  Transmission Date: 20201103
  Serious: Yes (Death)
  Sender: FDA-Public Use
  Company Number: US-JNJFOC-A-NJ2017-158414

PATIENT
  Age: 86 Year
  Sex: Female

DRUGS (3)
  1. OPSUMIT [Suspect]
     Active Substance: MACITENTAN
     Indication: PULMONARY ARTERIAL HYPERTENSION
     Dosage: 10 MG, QD
     Route: 048
     Dates: start: 20150320
  2. OXYGEN. [Concomitant]
     Active Substance: OXYGEN
  3. SILDENAFIL. [Concomitant]
     Active Substance: SILDENAFIL
     Dosage: 40 MG, TID
     Dates: start: 20140522

REACTIONS (6)
  - Pulmonary arterial hypertension [Fatal]
  - Oxygen consumption increased [Not Recovered/Not Resolved]
  - Therapy non-responder [Unknown]
  - Dyspnoea [Not Recovered/Not Resolved]
  - Pruritus [Not Recovered/Not Resolved]
  - Rash [Not Recovered/Not Resolved]

NARRATIVE: CASE EVENT DATE: 20170817
